FAERS Safety Report 9612903 (Version 1)
Quarter: 2013Q4

REPORT INFORMATION
  Report Type: Spontaneous
  Country: GB (occurrence: GB)
  Receive Date: 20131010
  Receipt Date: 20131010
  Transmission Date: 20140711
  Serious: Yes (Other)
  Sender: FDA-Public Use
  Company Number: GB-OTSUKA-000808

PATIENT
  Age: 80 Year
  Sex: Male
  Weight: 94.2 kg

DRUGS (2)
  1. PLETAL [Suspect]
     Indication: INTERMITTENT CLAUDICATION
     Dosage: 100 MG, BID
     Route: 048
     Dates: start: 20040727
  2. BETAHISTINE [Concomitant]
     Dosage: 16 MG, UNK
     Route: 048

REACTIONS (1)
  - Pulmonary fibrosis [Not Recovered/Not Resolved]
